FAERS Safety Report 18293019 (Version 2)
Quarter: 2020Q4

REPORT INFORMATION
  Report Type: Spontaneous
  Country: US (occurrence: US)
  Receive Date: 20200921
  Receipt Date: 20201216
  Transmission Date: 20210113
  Serious: No
  Sender: FDA-Public Use
  Company Number: US-CATALYST PHARMACEUTICALS, INC-2020CAT00438

PATIENT
  Age: 63 Year
  Sex: Female
  Weight: 58.96 kg

DRUGS (35)
  1. LIOTHYRONINE [Concomitant]
     Active Substance: LIOTHYRONINE
     Dosage: 10 MG, 1X/DAY IN THE MORNING
     Route: 048
  2. B-COMPLEX/ B12 [Concomitant]
  3. CURCUMIN [Concomitant]
     Active Substance: CURCUMIN
  4. STINGING NETTLE [Concomitant]
     Active Substance: HERBALS
  5. FIRDAPSE [Suspect]
     Active Substance: AMIFAMPRIDINE PHOSPHATE
     Dosage: 10 MG, 3X/DAY
     Route: 048
     Dates: start: 20200816, end: 20201002
  6. DICLOFENAC [Concomitant]
     Active Substance: DICLOFENAC
     Dosage: 100 MG, 2X/DAY
     Route: 048
  7. GINKO BILOBA [Concomitant]
     Active Substance: GINKGO
  8. LIONS MANE [Concomitant]
  9. MANGANESE [Concomitant]
     Active Substance: MANGANESE CHLORIDE
  10. IVIG [Suspect]
     Active Substance: HUMAN IMMUNOGLOBULIN G
     Dosage: 30 G, 1X/WEEK
     Route: 042
  11. LEVOTHYROXINE. [Concomitant]
     Active Substance: LEVOTHYROXINE
     Dosage: 150 ?G, 1X/DAY IN THE MORNING
     Route: 048
  12. SAM-E [Concomitant]
     Active Substance: ADEMETIONINE
  13. VITAMIN C [Concomitant]
     Active Substance: ASCORBIC ACID
  14. FIRDAPSE [Suspect]
     Active Substance: AMIFAMPRIDINE PHOSPHATE
     Dosage: 15 MG, ONCE OR TWICE A DAY
     Dates: start: 202010, end: 20201015
  15. MSM [Concomitant]
     Active Substance: DIMETHYL SULFONE
  16. OMEGA 3 VITAMINS [Concomitant]
  17. VITAMIN D3 [Concomitant]
     Active Substance: CHOLECALCIFEROL
  18. CALCIUM [Concomitant]
     Active Substance: CALCIUM
  19. COENZYME Q-10 [Concomitant]
  20. L-GLUTAMINE [Concomitant]
  21. FIRDAPSE [Suspect]
     Active Substance: AMIFAMPRIDINE PHOSPHATE
     Dosage: 15 MG, 3X/DAY
     Dates: start: 20201003, end: 202010
  22. VALIUM [Suspect]
     Active Substance: DIAZEPAM
  23. IRON [Concomitant]
     Active Substance: IRON
  24. MONOLAURIN [Concomitant]
  25. N-ACETYL CYSTEINE [Concomitant]
     Active Substance: ACETYLCYSTEINE
  26. TOTAL RESTORE [Concomitant]
  27. CLARITIN [Concomitant]
     Active Substance: LORATADINE
     Dosage: 10 MG, 1X/DAY IN THE MORNING
     Route: 048
  28. MEDROL [Concomitant]
     Active Substance: METHYLPREDNISOLONE
     Dosage: 8 MG, 1X/DAY IN THE MORNING
     Route: 048
  29. BIO COMPLETE 3 [Concomitant]
  30. LEMON BALM [Concomitant]
     Active Substance: HERBALS\MELISSA OFFICINALIS
  31. MULTI-VITAMIN [Concomitant]
     Active Substance: .ALPHA.-TOCOPHEROL ACETATE, DL-\ASCORBIC ACID\CYANOCOBALAMIN\FLUORIDE ION\FOLIC ACID\NIACIN\PYRIDOXINE\RIBOFLAVIN\THIAMINE\VITAMIN A\VITAMIN D
  32. FIRDAPSE [Suspect]
     Active Substance: AMIFAMPRIDINE PHOSPHATE
     Indication: MYASTHENIC SYNDROME
     Dosage: 5 MG, 3X/DAY
     Route: 048
     Dates: start: 2020, end: 2020
  33. ALPHA LIPOIC ACID [Concomitant]
     Active Substance: .ALPHA.-LIPOIC ACID
  34. GRAPE SEED EXTRACT [Concomitant]
     Active Substance: DIETARY SUPPLEMENT\GRAPE SEED EXTRACT
  35. GLUCOSAMINE [Concomitant]
     Active Substance: GLUCOSAMINE

REACTIONS (27)
  - Cough [Recovering/Resolving]
  - Dizziness [Recovered/Resolved]
  - Paraesthesia [Recovered/Resolved]
  - Headache [Not Recovered/Not Resolved]
  - Photopsia [Recovered/Resolved]
  - Pain in jaw [Recovered/Resolved]
  - Chest discomfort [Recovered/Resolved]
  - Feeling abnormal [Recovered/Resolved]
  - Inflammation [Not Recovered/Not Resolved]
  - Illness [Unknown]
  - Paraesthesia oral [Recovered/Resolved]
  - Nausea [Recovered/Resolved]
  - Lethargy [Not Recovered/Not Resolved]
  - Hypertension [Recovered/Resolved]
  - Psychomotor hyperactivity [Recovering/Resolving]
  - Nervousness [Recovering/Resolving]
  - Therapeutic product effect incomplete [Not Recovered/Not Resolved]
  - Decreased appetite [Unknown]
  - Weight decreased [Unknown]
  - Oropharyngeal pain [Recovering/Resolving]
  - Head discomfort [Not Recovered/Not Resolved]
  - Insomnia [Recovered/Resolved]
  - Asthenia [Not Recovered/Not Resolved]
  - Palpitations [Recovering/Resolving]
  - Discomfort [Recovering/Resolving]
  - Anxiety [Recovering/Resolving]
  - Inhibitory drug interaction [Not Recovered/Not Resolved]

NARRATIVE: CASE EVENT DATE: 2020
